FAERS Safety Report 8416789-0 (Version None)
Quarter: 2012Q2

REPORT INFORMATION
  Report Type: 
  Country: None (occurrence: None)
  Receive Date: 20120530
  Receipt Date: 20120516
  Transmission Date: 20120825
  Serious: Yes (Life-Threatening, Hospitalization)
  Sender: FDA-Public Use
  Company Number: DSA_57484_2012

PATIENT
  Age: 58 Year
  Sex: Male

DRUGS (11)
  1. FAMOTIDINE [Concomitant]
  2. OLANZAPINE [Concomitant]
  3. ESTAZOLAM [Concomitant]
  4. CARVEDILOL [Concomitant]
  5. NIFEDIPINE [Suspect]
     Indication: PRODUCT USED FOR UNKNOWN INDICATION
     Dosage: 40 MG QD, EXTENDED RELEASE ORAL
     Route: 048
  6. TELMISARTAN [Concomitant]
  7. ISOSORBIDE MONONITRATE [Suspect]
     Indication: PRODUCT USED FOR UNKNOWN INDICATION
     Dosage: 40 MG QD, EXTENDED RELEASE
  8. ALPRAZOLAM [Concomitant]
  9. FLUNITRAZEPAM [Concomitant]
  10. ISOSORBIDE DINITRATE [Suspect]
     Indication: PRODUCT USED FOR UNKNOWN INDICATION
     Dosage: 40 MG QD TRANSDERMAL
     Route: 062
  11. DILTIAZEM HYDROCHLORIDE [Suspect]
     Indication: PRINZMETAL ANGINA
     Dosage: 100 MG QD EXTENDED RELEASE

REACTIONS (15)
  - SNORING [None]
  - BLOOD CREATINE PHOSPHOKINASE INCREASED [None]
  - ELECTROCARDIOGRAM ST SEGMENT ELEVATION [None]
  - BLOOD CREATINE PHOSPHOKINASE MB INCREASED [None]
  - ARTERIOSPASM CORONARY [None]
  - TROPONIN T INCREASED [None]
  - CORONARY ARTERY STENOSIS [None]
  - BLOOD GLUCOSE INCREASED [None]
  - PULMONARY OEDEMA [None]
  - DRUG DOSE OMISSION [None]
  - CARDIOGENIC SHOCK [None]
  - VENTRICULAR FIBRILLATION [None]
  - LOSS OF CONSCIOUSNESS [None]
  - BUNDLE BRANCH BLOCK RIGHT [None]
  - EJECTION FRACTION DECREASED [None]
